FAERS Safety Report 5320894-5 (Version None)
Quarter: 2007Q2

REPORT INFORMATION
  Report Type: 
  Country: None (occurrence: None)
  Receive Date: 20070504
  Receipt Date: 20070420
  Transmission Date: 20071010
  Serious: Yes (Other)
  Sender: FDA-Public Use
  Company Number: CHNY2007CA01725

PATIENT
  Age: 75 Year
  Sex: Female
  Weight: 70.8 kg

DRUGS (1)
  1. BUCKLEY'S DM COUGH SUPRESSANT + DECONGESTANT (NCH)(PSEUDOEPHRINE HYDRO [Suspect]
     Indication: COUGH
     Dosage: 1 TSP, ONCE/SINGLE, ORAL
     Route: 048
     Dates: start: 20070417, end: 20070417

REACTIONS (5)
  - CHEST PAIN [None]
  - HEART RATE INCREASED [None]
  - PULSE ABNORMAL [None]
  - PULSE ABSENT [None]
  - UNEVALUABLE EVENT [None]
